FAERS Safety Report 9970295 (Version 1)
Quarter: 2014Q1

REPORT INFORMATION
  Report Type: Spontaneous
  Country: US (occurrence: None)
  Receive Date: 20140304
  Receipt Date: 20140304
  Transmission Date: 20141002
  Serious: Yes (Other)
  Sender: FDA-Public Use
  Company Number: 2014-US-002534

PATIENT
  Age: 41 Year
  Sex: Female
  Weight: 93.9 kg

DRUGS (7)
  1. XYREM (SODIUM OXYBATE) ORAL SOLUTION, 500 MG/ML [Suspect]
     Indication: NARCOLEPSY
     Route: 048
     Dates: start: 201101
  2. XYREM (SODIUM OXYBATE) ORAL SOLUTION, 500 MG/ML [Suspect]
     Indication: CATAPLEXY
     Route: 048
     Dates: start: 201101
  3. TOPIRAMATE (TOPIRAMATE) [Suspect]
     Indication: CONVULSION
     Route: 048
     Dates: start: 2012
  4. VIMPAT (LACOSAMIDE) [Concomitant]
  5. DEXILANT (DEXLANSOPRAZOLE) [Concomitant]
  6. ZOLOFT (SERTRALINE HYDROCHLORIDE) [Concomitant]
  7. RESTATIS (CICLOSPORIN) [Concomitant]

REACTIONS (6)
  - Balance disorder [None]
  - Amnesia [None]
  - Convulsion [None]
  - Paraesthesia [None]
  - Paraesthesia [None]
  - Clumsiness [None]
